FAERS Safety Report 6232157-4 (Version None)
Quarter: 2009Q2

REPORT INFORMATION
  Report Type: 
  Country: None (occurrence: None)
  Receive Date: 20090617
  Receipt Date: 20090604
  Transmission Date: 20091009
  Serious: Yes (Hospitalization)
  Sender: FDA-Public Use
  Company Number: US-RANBAXY-2009RR-24668

PATIENT
  Age: 15 Year
  Sex: Female
  Weight: 60.2 kg

DRUGS (1)
  1. FUROSEMIDE TABLET [Suspect]
     Route: 048

REACTIONS (2)
  - DRUG ABUSE [None]
  - METABOLIC ALKALOSIS [None]
